FAERS Safety Report 13704538 (Version 1)
Quarter: 2017Q2

REPORT INFORMATION
  Report Type: Spontaneous
  Country: US (occurrence: US)
  Receive Date: 20170629
  Receipt Date: 20170629
  Transmission Date: 20170830
  Serious: No
  Sender: FDA-Public Use
  Company Number: None

PATIENT
  Age: 53 Year
  Sex: Female
  Weight: 141.7 kg

DRUGS (1)
  1. PEG 3350 [Suspect]
     Active Substance: POLYETHYLENE GLYCOL 3350
     Indication: CONSTIPATION
     Dosage: ?          OTHER STRENGTH:GM;QUANTITY:17 GRAMS;?
     Route: 048
     Dates: start: 20170620, end: 20170628

REACTIONS (4)
  - Parosmia [None]
  - Nausea [None]
  - Malaise [None]
  - Myalgia [None]

NARRATIVE: CASE EVENT DATE: 20170628
